FAERS Safety Report 13166176 (Version 1)
Quarter: 2017Q1

REPORT INFORMATION
  Report Type: Spontaneous
  Country: US (occurrence: US)
  Receive Date: 20170130
  Receipt Date: 20170130
  Transmission Date: 20170428
  Serious: No
  Sender: FDA-Public Use
  Company Number: None

PATIENT
  Age: 30 Year
  Sex: Female
  Weight: 63.56 kg

DRUGS (3)
  1. MOTRIN [Concomitant]
     Active Substance: IBUPROFEN
  2. EXCEDRIN [Concomitant]
     Active Substance: ACETAMINOPHEN\ASPIRIN\CAFFEINE
  3. SKYLA [Suspect]
     Active Substance: LEVONORGESTREL

REACTIONS (2)
  - Headache [None]
  - Migraine [None]

NARRATIVE: CASE EVENT DATE: 20170113
